FAERS Safety Report 9551729 (Version 1)
Quarter: 2013Q3

REPORT INFORMATION
  Report Type: Spontaneous
  Country: US (occurrence: None)
  Receive Date: 20130724
  Receipt Date: 20130724
  Transmission Date: 20140515
  Serious: Yes (Other)
  Sender: FDA-Public Use
  Company Number: PHEH2012US017005

PATIENT
  Age: 7 Year
  Sex: Male

DRUGS (2)
  1. GLEEVEC [Suspect]
     Indication: ACUTE MYELOID LEUKAEMIA
     Route: 048
     Dates: end: 20120715
  2. GLEEVEC [Suspect]
     Indication: CHROMOSOME ANALYSIS ABNORMAL
     Route: 048
     Dates: end: 20120715

REACTIONS (5)
  - Neoplasm progression [None]
  - Leukaemia recurrent [None]
  - Treatment failure [None]
  - Drug resistance [None]
  - Malignant neoplasm progression [None]
